FAERS Safety Report 5177582-8 (Version None)
Quarter: 2006Q4

REPORT INFORMATION
  Report Type: 
  Country: None (occurrence: None)
  Receive Date: 20061207
  Receipt Date: 20061127
  Transmission Date: 20070319
  Serious: Yes (Other)
  Sender: FDA-Public Use
  Company Number: 2006103067

PATIENT
  Age: 64 Year
  Sex: Male
  Weight: 105.2345 kg

DRUGS (5)
  1. LIPITOR [Suspect]
     Indication: HYPERLIPIDAEMIA
     Dosage: 10 MG
  2. MULTIVITAMIN [Suspect]
  3. HERBAL PREPARATION (HERBAL PREPARATION) [Suspect]
  4. GINKO BILOBA (GINKGO BILOBA) [Suspect]
  5. FISH OIL (FISH OIL) [Suspect]

REACTIONS (2)
  - HEPATIC CYST [None]
  - HEPATIC ENZYME INCREASED [None]
